FAERS Safety Report 9030094 (Version 1)
Quarter: 2013Q1

REPORT INFORMATION
  Report Type: Spontaneous
  Country: US (occurrence: US)
  Receive Date: 20130125
  Receipt Date: 20130125
  Transmission Date: 20140127
  Serious: No
  Sender: FDA-Public Use
  Company Number: US-BIOGENIDEC-2013BI007540

PATIENT
  Age: 52 Year
  Sex: Female

DRUGS (2)
  1. TYSABRI [Suspect]
     Indication: MULTIPLE SCLEROSIS
     Route: 042
     Dates: start: 20070711, end: 20081212
  2. TYSABRI [Suspect]
     Indication: MULTIPLE SCLEROSIS
     Route: 042
     Dates: start: 20090114, end: 20121031

REACTIONS (4)
  - Cellulitis [Not Recovered/Not Resolved]
  - Fall [Recovered/Resolved]
  - Pain in extremity [Recovered/Resolved]
  - Local swelling [Not Recovered/Not Resolved]
